FAERS Safety Report 22106088 (Version 2)
Quarter: 2023Q2

REPORT INFORMATION
  Report Type: Spontaneous
  Country: US (occurrence: US)
  Receive Date: 20230317
  Receipt Date: 20230613
  Transmission Date: 20230722
  Serious: No
  Sender: FDA-Public Use
  Company Number: US-SA-SAC20230310000285

PATIENT
  Sex: Male

DRUGS (1)
  1. DUPIXENT [Suspect]
     Active Substance: DUPILUMAB
     Indication: Eczema
     Dosage: 300MG, FREQUECY : OTHER
     Route: 058

REACTIONS (3)
  - Photosensitivity reaction [Unknown]
  - Erythema [Unknown]
  - Injection site bruising [Recovered/Resolved]
